FAERS Safety Report 9571857 (Version 1)
Quarter: 2013Q3

REPORT INFORMATION
  Report Type: Spontaneous
  Country: FR (occurrence: None)
  Receive Date: 20130927
  Receipt Date: 20130927
  Transmission Date: 20140515
  Serious: Yes (Hospitalization)
  Sender: FDA-Public Use
  Company Number: AUR-APL-2013-06957

PATIENT
  Age: 53 Year
  Sex: Male

DRUGS (6)
  1. OLANZAPINE (OLANZAPINE) [Suspect]
     Indication: SCHIZOPHRENIA
     Dosage: UP TO 65 MG/DAY
  2. QUETIAPINE (QUETIAPINE) [Suspect]
     Indication: SCHIZOPHRENIA
     Dosage: 1 D
  3. AMISULPRIDE (AMISULPRIDE) [Suspect]
     Indication: SCHIZOPHRENIA
     Dosage: UP TO 1200 MG/DAY
  4. CLOZAPINE (CLOZAPINE) [Suspect]
     Indication: SCHIZOPHRENIA
     Dosage: UP TO 400 MG/DAY
  5. HALOPERIDOL (HALOPERIDOL) (HALOPERIDOL) [Suspect]
     Indication: SCHIZOPHRENIA
     Dosage: UP TO 20 MG/DAY
  6. RISPERIDONE (RISPERIDONE) [Suspect]
     Indication: SCHIZOPHRENIA
     Dosage: UP TO 10 MG/DAY

REACTIONS (11)
  - Akathisia [None]
  - Dystonia [None]
  - Oculogyric crisis [None]
  - Tremor [None]
  - Tardive dyskinesia [None]
  - Hallucination, auditory [None]
  - Persecutory delusion [None]
  - Anxiety [None]
  - Depression [None]
  - Judgement impaired [None]
  - Delusion [None]
